FAERS Safety Report 24438032 (Version 1)
Quarter: 2024Q4

REPORT INFORMATION
  Report Type: Spontaneous
  Country: US (occurrence: US)
  Receive Date: 20241015
  Receipt Date: 20241015
  Transmission Date: 20250115
  Serious: Yes (Other)
  Sender: MYLAN
  Company Number: US-MYLANLABS-2024M1093269

PATIENT
  Age: 52 Year
  Sex: Male

DRUGS (11)
  1. DOXORUBICIN [Suspect]
     Active Substance: DOXORUBICIN
     Indication: Follicular lymphoma
     Dosage: UNK
     Route: 065
  2. PREDNISONE [Suspect]
     Active Substance: PREDNISONE
     Indication: Follicular lymphoma
     Dosage: UNK
     Route: 065
  3. RITUXIMAB [Suspect]
     Active Substance: RITUXIMAB
     Indication: Follicular lymphoma
     Dosage: UNK
     Route: 065
  4. CYCLOPHOSPHAMIDE [Suspect]
     Active Substance: CYCLOPHOSPHAMIDE
     Indication: Follicular lymphoma
     Dosage: UNK
     Route: 065
  5. VINCRISTINE [Suspect]
     Active Substance: VINCRISTINE
     Indication: Follicular lymphoma
     Dosage: UNK
     Route: 065
  6. ATOVAQUONE [Suspect]
     Active Substance: ATOVAQUONE
     Indication: Babesiosis
     Dosage: 1500 MILLIGRAM, QD
     Route: 065
  7. AZITHROMYCIN [Suspect]
     Active Substance: AZITHROMYCIN
     Indication: Babesiosis
     Dosage: 500 MILLIGRAM, QD
     Route: 065
  8. TAFENOQUINE [Suspect]
     Active Substance: TAFENOQUINE
     Indication: Babesiosis
     Dosage: UNK, 300MG ON THE FIRST DAY AND 150MG ON THE 2?SUBSEQUENT DAYS
     Route: 065
  9. TAFENOQUINE [Suspect]
     Active Substance: TAFENOQUINE
     Indication: Infection
     Dosage: 300 MILLIGRAM, WEEKLY MAINTENANCE DOSE OF TAFENOQUINE WAS 300MG
     Route: 065
  10. CLINDAMYCIN [Concomitant]
     Active Substance: CLINDAMYCIN
     Indication: Babesiosis
     Dosage: UNK,  THERAPY COMPLETED
     Route: 065
  11. QUININE [Concomitant]
     Active Substance: QUININE
     Indication: Babesiosis
     Dosage: UNK, THERAPY COMPLETED
     Route: 065

REACTIONS (2)
  - Babesiosis [Recovering/Resolving]
  - Infection [Recovering/Resolving]
